FAERS Safety Report 16782586 (Version 1)
Quarter: 2019Q3

REPORT INFORMATION
  Report Type: Report from Study
  Country: US (occurrence: US)
  Receive Date: 20190906
  Receipt Date: 20190906
  Transmission Date: 20191005
  Serious: Yes (Other)
  Sender: FDA-Public Use
  Company Number: US-ACTELION-A-NJ2019-192544

PATIENT
  Age: 86 Year
  Sex: Female
  Weight: 140 kg

DRUGS (1)
  1. OPSUMIT [Suspect]
     Active Substance: MACITENTAN
     Indication: PULMONARY ARTERIAL HYPERTENSION
     Dosage: 10 MG, QD
     Route: 048

REACTIONS (8)
  - Alopecia [Unknown]
  - Trichorrhexis [Unknown]
  - Condition aggravated [Unknown]
  - Scleroderma [Unknown]
  - Fall [Unknown]
  - Stress [Unknown]
  - Dyspnoea exertional [Unknown]
  - Spinal column injury [Unknown]

NARRATIVE: CASE EVENT DATE: 201907
